FAERS Safety Report 8443238-9 (Version None)
Quarter: 2012Q2

REPORT INFORMATION
  Report Type: 
  Country: None (occurrence: None)
  Receive Date: 20120617
  Receipt Date: 20120605
  Transmission Date: 20120825
  Serious: Yes (Other)
  Sender: FDA-Public Use
  Company Number: IL-BRISTOL-MYERS SQUIBB COMPANY-16571440

PATIENT
  Age: 30 Year
  Sex: Female

DRUGS (1)
  1. MITOTANE [Suspect]
     Indication: PITUITARY-DEPENDENT CUSHING'S SYNDROME

REACTIONS (3)
  - PREGNANCY [None]
  - FOETAL DISORDER [None]
  - ABORTION INDUCED [None]
